FAERS Safety Report 6836353-4 (Version None)
Quarter: 2010Q3

REPORT INFORMATION
  Report Type: 
  Country: None (occurrence: None)
  Receive Date: 20100712
  Receipt Date: 20100712
  Transmission Date: 20110219
  Serious: Yes (Life-Threatening, Hospitalization)
  Sender: FDA-Public Use
  Company Number: None

PATIENT
  Age: 43 Year
  Sex: Female
  Weight: 81.6475 kg

DRUGS (1)
  1. COPAXONE [Suspect]
     Indication: MULTIPLE SCLEROSIS
     Dates: start: 20080702, end: 20100410

REACTIONS (4)
  - APHONIA [None]
  - CHOKING SENSATION [None]
  - MUSCULAR WEAKNESS [None]
  - MYDRIASIS [None]
